FAERS Safety Report 4302575-X (Version None)
Quarter: 2004Q1

REPORT INFORMATION
  Report Type: 
  Country: None (occurrence: None)
  Receive Date: 20040224
  Receipt Date: 20040219
  Transmission Date: 20041129
  Serious: Yes (Other)
  Sender: FDA-Public Use
  Company Number: 200411346US

PATIENT
  Age: 19 Year
  Sex: Male

DRUGS (3)
  1. LANTUS [Suspect]
     Indication: DIABETES MELLITUS
     Dosage: DOSE: 30-35; DOSE UNIT: UNITS
     Dates: start: 20030201
  2. ANTISEIZURE MEDICATION [Concomitant]
     Indication: CONVULSION
     Dosage: DOSE: UNK
  3. SERUMLIPIDREDUCING AGENTS [Concomitant]
     Indication: BLOOD CHOLESTEROL
     Dosage: DOSE: UNK

REACTIONS (1)
  - CONVULSION [None]
